FAERS Safety Report 5905217-2 (Version None)
Quarter: 2008Q3

REPORT INFORMATION
  Report Type: 
  Country: None (occurrence: None)
  Receive Date: 20080909
  Receipt Date: 20071012
  Transmission Date: 20090109
  Serious: Yes (Hospitalization)
  Sender: FDA-Public Use
  Company Number: 163-20785-07100702

PATIENT
  Age: 61 Year
  Sex: Male
  Weight: 83.0083 kg

DRUGS (23)
  1. THALOMID [Suspect]
     Indication: MULTIPLE MYELOMA
     Dosage: 200 MG, EVERYDAY, ORAL ; 100 MG, DAILY, ORAL
     Route: 048
     Dates: start: 20040911, end: 20041023
  2. VELCADE [Suspect]
     Indication: MULTIPLE MYELOMA
     Dosage: 1 MG/M2
     Route: 048
     Dates: start: 20040911, end: 20041020
  3. DEXAMETHASONE TAB [Suspect]
     Indication: MULTIPLE MYELOMA
     Dosage: 40 MG
     Dates: start: 20040911, end: 20041121
  4. CISPLATIN [Suspect]
     Indication: MULTIPLE MYELOMA
     Dosage: 10 MG/M2
     Dates: start: 20040911, end: 20041023
  5. ADRIAMYCIN PFS [Suspect]
     Indication: MULTIPLE MYELOMA
     Dosage: 10 MG/M2
     Dates: start: 20040911, end: 20041023
  6. CYCLOPHOSPHAMIDE [Suspect]
     Indication: MULTIPLE MYELOMA
     Dosage: 400 MG/M2
     Dates: start: 20040911, end: 20041023
  7. ETOPOSIDE [Suspect]
     Indication: MULTIPLE MYELOMA
     Dosage: 200 MG/M2
     Dates: start: 20041121
  8. ACYCLOVIR [Concomitant]
  9. TOPROL-XL [Concomitant]
  10. LOTREL 10/20 (TABLETS) [Concomitant]
  11. HYDROCHLOROTHIAZIDE (HYDROCHLOROTHIAZIDE) (TABLETS) [Concomitant]
  12. LIPITOR [Concomitant]
  13. ALLEGRA [Concomitant]
  14. FLOMAX [Concomitant]
  15. MULTIVITAMINS (MULTIVITAMINS) (TABLETS) [Concomitant]
  16. FOLIC ACID [Concomitant]
  17. COUMADIN [Concomitant]
  18. DIFLUCAN [Concomitant]
  19. REGLAN [Concomitant]
  20. LOMOTIL (LOMOTIL) (TABLETS) [Concomitant]
  21. PHENERGAN HCL [Concomitant]
  22. LASIX [Concomitant]
  23. ALLEGRA [Concomitant]

REACTIONS (2)
  - COLITIS [None]
  - LUNG INFECTION [None]
